FAERS Safety Report 9892884 (Version 1)
Quarter: 2014Q1

REPORT INFORMATION
  Report Type: Spontaneous
  Country: IT (occurrence: IT)
  Receive Date: 20140213
  Receipt Date: 20140213
  Transmission Date: 20141002
  Serious: Yes (Other)
  Sender: FDA-Public Use
  Company Number: IT-PFIZER INC-2014039414

PATIENT
  Age: 62 Year
  Sex: Female
  Weight: 65 kg

DRUGS (2)
  1. CARBOPLATINO PFIZER ITALIA [Suspect]
     Indication: BREAST CANCER FEMALE
     Dosage: 165 MG, WEEKLY
     Route: 042
     Dates: start: 20130208, end: 20131224
  2. PACLITAXEL SANDOZ [Concomitant]

REACTIONS (5)
  - Erythema [Recovered/Resolved]
  - Hypertension [Recovered/Resolved]
  - Malaise [Recovered/Resolved]
  - Tachycardia [Recovered/Resolved]
  - Off label use [Unknown]
